FAERS Safety Report 9346467 (Version 2)
Quarter: 2013Q4

REPORT INFORMATION
  Report Type: Spontaneous
  Country: US (occurrence: US)
  Receive Date: 20130613
  Receipt Date: 20131021
  Transmission Date: 20140711
  Serious: Yes (Hospitalization, Other)
  Sender: FDA-Public Use
  Company Number: US-BAYER-2013-069363

PATIENT
  Age: 32 Year
  Sex: Female
  Weight: 58.05 kg

DRUGS (2)
  1. MIRENA [Suspect]
     Indication: CONTRACEPTION
     Dosage: 20 MCG/24HR, CONT
     Route: 015
     Dates: start: 20090624, end: 20100621
  2. PRENATAL VITAMINS [Concomitant]

REACTIONS (7)
  - Uterine perforation [None]
  - Injury [None]
  - Pain [None]
  - Emotional distress [None]
  - Genital haemorrhage [None]
  - Device issue [None]
  - Inappropriate schedule of drug administration [None]
